FAERS Safety Report 11759091 (Version 1)
Quarter: 2015Q4

REPORT INFORMATION
  Report Type: Spontaneous
  Country: US (occurrence: None)
  Receive Date: 20151119
  Receipt Date: 20151119
  Transmission Date: 20160304
  Serious: Yes (Disabling)
  Sender: FDA-Public Use
  Company Number: None

PATIENT
  Age: 29 Year
  Sex: Female
  Weight: 58.97 kg

DRUGS (1)
  1. NUVARING [Suspect]
     Active Substance: ETHINYL ESTRADIOL\ETONOGESTREL
     Indication: CONTRACEPTION
     Dosage: 1 RING 3/4 WEEK CYCLE
     Route: 067
     Dates: start: 20090401, end: 20140901

REACTIONS (4)
  - Antinuclear antibody positive [None]
  - Raynaud^s phenomenon [None]
  - Fatigue [None]
  - Cardiovascular disorder [None]

NARRATIVE: CASE EVENT DATE: 20140930
